FAERS Safety Report 22014153 (Version 1)
Quarter: 2023Q1

REPORT INFORMATION
  Report Type: Spontaneous
  Country: JP (occurrence: JP)
  Receive Date: 20230221
  Receipt Date: 20230221
  Transmission Date: 20230418
  Serious: Yes (Other)
  Sender: FDA-Public Use
  Company Number: JP-BRISTOL-MYERS SQUIBB COMPANY-2023-022919

PATIENT

DRUGS (1)
  1. ISTODAX [Suspect]
     Active Substance: ROMIDEPSIN
     Indication: Angioimmunoblastic T-cell lymphoma

REACTIONS (2)
  - Altered state of consciousness [Not Recovered/Not Resolved]
  - Meningoencephalitis herpetic [Unknown]
